FAERS Safety Report 15750567 (Version 1)
Quarter: 2018Q4

REPORT INFORMATION
  Report Type: Spontaneous
  Country: US (occurrence: US)
  Receive Date: 20181221
  Receipt Date: 20181221
  Transmission Date: 20190205
  Serious: No
  Sender: FDA-Public Use
  Company Number: US-ENDO PHARMACEUTICALS INC-2018-039509

PATIENT
  Age: 54 Year
  Sex: Male

DRUGS (1)
  1. APLISOL [Suspect]
     Active Substance: TUBERCULIN PURIFIED PROTEIN DERIVATIVE
     Indication: INVESTIGATION
     Dosage: 0.1 ML, SINGLE
     Route: 023
     Dates: start: 20180522

REACTIONS (1)
  - False positive tuberculosis test [Unknown]

NARRATIVE: CASE EVENT DATE: 201805
